FAERS Safety Report 20180854 (Version 5)
Quarter: 2022Q2

REPORT INFORMATION
  Report Type: Report from Study
  Country: CA (occurrence: CA)
  Receive Date: 20211214
  Receipt Date: 20220610
  Transmission Date: 20220721
  Serious: Yes (Other)
  Sender: FDA-Public Use
  Company Number: CA-JNJFOC-20211116341

PATIENT
  Age: 14 Year
  Sex: Female
  Weight: 51 kg

DRUGS (4)
  1. REMICADE [Suspect]
     Active Substance: INFLIXIMAB
     Indication: Crohn^s disease
     Dosage: PATIENT WOULD RECEIVE 6 WEEK INDUCTION DOSE ON 03-DEC-2021.
     Route: 042
     Dates: start: 20211025
  2. REMICADE [Suspect]
     Active Substance: INFLIXIMAB
     Route: 042
     Dates: start: 20211206
  3. REMICADE [Suspect]
     Active Substance: INFLIXIMAB
     Dosage: ON 10-FEB-2022, THE PATIENT RECEIVED (5TH INFUSION) AT 400 MG AND PARTIAL HARVEY BRADSHAW COMPLETED.
     Route: 042
  4. REMICADE [Suspect]
     Active Substance: INFLIXIMAB
     Route: 042

REACTIONS (3)
  - Crohn^s disease [Not Recovered/Not Resolved]
  - Off label use [Unknown]
  - Product use issue [Unknown]

NARRATIVE: CASE EVENT DATE: 20211025
